FAERS Safety Report 8322400 (Version 2)
Quarter: 2013Q1

REPORT INFORMATION
  Report Type: Spontaneous
  Country: JP (occurrence: JP)
  Receive Date: 20120105
  Receipt Date: 20130318
  Transmission Date: 20140127
  Serious: Yes (Other)
  Sender: FDA-Public Use
  Company Number: JP-ELI_LILLY_AND_COMPANY-JP201111003936

PATIENT
  Age: 71 Year
  Sex: Female

DRUGS (2)
  1. FORTEO [Suspect]
     Dosage: UNK
     Route: 058
     Dates: start: 20111026, end: 201212
  2. FORTEO [Suspect]
     Dosage: UNK
     Route: 058
     Dates: start: 20121228

REACTIONS (8)
  - Intracranial aneurysm [Unknown]
  - Flatulence [Recovered/Resolved]
  - Injection site erythema [Unknown]
  - Injection site bruising [Unknown]
  - Glossodynia [Unknown]
  - Myalgia [Unknown]
  - Abdominal pain [Unknown]
  - Oral pain [Unknown]
